FAERS Safety Report 7670762-9 (Version None)
Quarter: 2011Q3

REPORT INFORMATION
  Report Type: 
  Country: None (occurrence: None)
  Receive Date: 20110803
  Receipt Date: 20110720
  Transmission Date: 20111222
  Serious: Yes (Other)
  Sender: FDA-Public Use
  Company Number: TPA2011A03753

PATIENT
  Age: 71 Year
  Sex: Female

DRUGS (2)
  1. ACTOS [Suspect]
     Indication: TYPE 2 DIABETES MELLITUS
     Dosage: 45 MG, PER ORAL; 30 MG, PER ORAL
     Route: 048
     Dates: start: 20090101, end: 20110101
  2. ACTOS [Suspect]
     Indication: TYPE 2 DIABETES MELLITUS
     Dosage: 45 MG, PER ORAL; 30 MG, PER ORAL
     Route: 048
     Dates: start: 20110101

REACTIONS (1)
  - BLADDER TRANSITIONAL CELL CARCINOMA [None]
